FAERS Safety Report 6359978-1 (Version None)
Quarter: 2009Q3

REPORT INFORMATION
  Report Type: 
  Country: None (occurrence: None)
  Receive Date: 20090917
  Receipt Date: 20090907
  Transmission Date: 20100115
  Serious: Yes (Life-Threatening)
  Sender: FDA-Public Use
  Company Number: JP-PFIZER INC-2009268703

PATIENT
  Age: 61 Year

DRUGS (3)
  1. LIPITOR [Suspect]
     Indication: HYPERLIPIDAEMIA
     Dosage: 10 MG, DAILY
     Route: 048
     Dates: start: 20040701, end: 20090905
  2. PLETAL [Suspect]
     Dosage: 100 MG, DAILY
     Route: 048
     Dates: start: 20070202, end: 20090905
  3. PANALDINE [Suspect]
     Dosage: UNK
     Route: 048
     Dates: start: 20090707, end: 20090810

REACTIONS (1)
  - LIVER DISORDER [None]
